FAERS Safety Report 7301190-3 (Version None)
Quarter: 2010Q4

REPORT INFORMATION
  Report Type: 
  Country: None (occurrence: None)
  Receive Date: 20101229
  Receipt Date: 20100907
  Transmission Date: 20110411
  Serious: No
  Sender: FDA-Public Use
  Company Number: 1000016154

PATIENT
  Sex: Male

DRUGS (2)
  1. BYSTOLIC [Suspect]
     Dosage: ORAL
     Route: 048
  2. JANUVIA [Concomitant]

REACTIONS (2)
  - BLOOD CREATININE INCREASED [None]
  - BLOOD UREA INCREASED [None]
